FAERS Safety Report 21178776 (Version 1)
Quarter: 2022Q3

REPORT INFORMATION
  Report Type: Report from Study
  Country: US (occurrence: US)
  Receive Date: 20220805
  Receipt Date: 20220805
  Transmission Date: 20221027
  Serious: Yes (Other)
  Sender: FDA-Public Use
  Company Number: US-JAZZ-2022-US-012056

PATIENT
  Sex: Female

DRUGS (15)
  1. XYREM [Suspect]
     Active Substance: SODIUM OXYBATE
     Indication: Hypersomnia
     Dosage: UNK
     Route: 048
     Dates: start: 202203
  2. XYREM [Suspect]
     Active Substance: SODIUM OXYBATE
     Dosage: 4 GRAM, BID
     Route: 048
  3. METHYLPHENIDATE [Concomitant]
     Active Substance: METHYLPHENIDATE
     Dosage: UNK
     Dates: start: 20200401
  4. AUVI-Q [Concomitant]
     Active Substance: EPINEPHRINE
     Dosage: 0000
     Dates: start: 20080520
  5. VITAMIN D3 [Concomitant]
     Active Substance: CHOLECALCIFEROL
     Dosage: UNK
     Dates: start: 20210501
  6. NALTREXONE [Concomitant]
     Active Substance: NALTREXONE
     Dosage: UNK
     Dates: start: 20210901
  7. EDTA [EDETIC ACID] [Concomitant]
     Dosage: UNK
     Dates: start: 20220101
  8. MEGASPOREBIOTIC [Concomitant]
     Dosage: UNK
     Dates: start: 20210501
  9. ACETYLCYSTEINE [Concomitant]
     Active Substance: ACETYLCYSTEINE
     Dosage: CAPLET
     Dates: start: 20210501
  10. NATTOKINASE [Concomitant]
     Active Substance: NATTOKINASE
     Dosage: UNK
     Dates: start: 20210501
  11. ENERGYMAX [Concomitant]
     Dosage: 0000
     Dates: start: 20210501
  12. CALM EZ [Concomitant]
     Dosage: 0000
     Dates: start: 20210501
  13. DOXYCYCLINE HYCLATE [Concomitant]
     Active Substance: DOXYCYCLINE HYCLATE
     Dosage: 0000
     Dates: start: 20220516
  14. CLINDAMYCIN HYDROCHLORIDE [Concomitant]
     Active Substance: CLINDAMYCIN HYDROCHLORIDE
     Dosage: 0000
     Dates: start: 20220516
  15. JUNIOR VITA [Concomitant]
     Dosage: UNK
     Dates: start: 20210501

REACTIONS (5)
  - Lyme disease [Unknown]
  - Muscle spasms [Unknown]
  - Hyperhidrosis [Unknown]
  - Sinusitis [Unknown]
  - Enuresis [Unknown]
